FAERS Safety Report 25981449 (Version 1)
Quarter: 2025Q4

REPORT INFORMATION
  Report Type: Spontaneous
  Country: EU (occurrence: EU)
  Receive Date: 20251030
  Receipt Date: 20251030
  Transmission Date: 20260118
  Serious: Yes (Other)
  Sender: JOHNSON AND JOHNSON
  Company Number: EU-JNJFOC-20251029437

PATIENT
  Age: 59 Year
  Sex: Male

DRUGS (1)
  1. RYBREVANT [Suspect]
     Active Substance: AMIVANTAMAB-VMJW
     Indication: Lung adenocarcinoma
     Route: 065

REACTIONS (6)
  - Deep vein thrombosis [Unknown]
  - Rash [Unknown]
  - Skin ulcer [Unknown]
  - Paronychia [Unknown]
  - Skin fissures [Unknown]
  - Infusion related reaction [Unknown]
